FAERS Safety Report 13689033 (Version 1)
Quarter: 2017Q2

REPORT INFORMATION
  Report Type: Spontaneous
  Country: JP (occurrence: JP)
  Receive Date: 20170626
  Receipt Date: 20170626
  Transmission Date: 20170830
  Serious: Yes (Other)
  Sender: FDA-Public Use
  Company Number: JP-BIOGEN-2017BI00418815

PATIENT
  Sex: Male

DRUGS (4)
  1. CARBOPLATIN. [Concomitant]
     Active Substance: CARBOPLATIN
     Indication: GLIOBLASTOMA MULTIFORME
     Route: 065
  2. ETOPOSIDE. [Concomitant]
     Active Substance: ETOPOSIDE
     Indication: GLIOBLASTOMA MULTIFORME
     Route: 065
  3. AVONEX [Suspect]
     Active Substance: INTERFERON BETA-1A
     Indication: GLIOBLASTOMA MULTIFORME
     Route: 030
  4. RANIMUSTINE [Concomitant]
     Active Substance: RANIMUSTINE
     Indication: GLIOBLASTOMA MULTIFORME
     Route: 065

REACTIONS (3)
  - Bone marrow failure [Recovered/Resolved]
  - Drug administered to patient of inappropriate age [Unknown]
  - Intentional product use issue [Unknown]
